FAERS Safety Report 6355293-0 (Version None)
Quarter: 2009Q3

REPORT INFORMATION
  Report Type: 
  Country: None (occurrence: None)
  Receive Date: 20090914
  Receipt Date: 20090901
  Transmission Date: 20100115
  Serious: Yes (Other)
  Sender: FDA-Public Use
  Company Number: GB-MYLANLABS-2009S1015648

PATIENT
  Age: 37 Year
  Sex: Male

DRUGS (4)
  1. MIRTAZAPINE [Suspect]
     Indication: DEPRESSION
     Route: 048
     Dates: start: 20051222
  2. INFLIXIMAB [Concomitant]
     Indication: DRUG USE FOR UNKNOWN INDICATION
     Dosage: 1/7 WEEK
     Route: 042
  3. METHOTREXATE [Concomitant]
     Indication: DRUG USE FOR UNKNOWN INDICATION
     Route: 042
  4. PREDNISOLONE [Concomitant]
     Indication: DRUG USE FOR UNKNOWN INDICATION

REACTIONS (3)
  - LIP SWELLING [None]
  - RASH [None]
  - URTICARIA [None]
